FAERS Safety Report 8916458 (Version 1)
Quarter: 2012Q4

REPORT INFORMATION
  Report Type: 
  Country: US (occurrence: US)
  Receive Date: 20121120
  Receipt Date: 20121120
  Transmission Date: 20130627
  Serious: Yes (Hospitalization)
  Sender: FDA-Public Use
  Company Number: US-BAYER-2012-120625

PATIENT
  Age: 39 Year
  Sex: Female
  Weight: 99.77 kg

DRUGS (12)
  1. OCELLA [Suspect]
     Dosage: 3-0.03mg;UNK
     Dates: start: 20091218
  2. OCELLA [Suspect]
     Dosage: UNK
     Dates: start: 20100507
  3. OCELLA [Suspect]
     Dosage: UNK
     Dates: start: 20100807
  4. OCELLA [Suspect]
     Dosage: UNK
     Dates: start: 20101021
  5. OCELLA [Suspect]
     Dosage: UNK
     Dates: start: 20110103
  6. ALLEGRA [Concomitant]
  7. ADVAIR [Concomitant]
  8. TOPAMAX [Concomitant]
  9. ROCEPHIN [Concomitant]
     Indication: PNEUMONIA
  10. BIAXIN [Concomitant]
     Indication: PNEUMONIA
  11. DILTIAZEM [Concomitant]
  12. FLUTICASONE [Concomitant]

REACTIONS (1)
  - Pulmonary embolism [Recovered/Resolved]
